FAERS Safety Report 5208938-2 (Version None)
Quarter: 2007Q1

REPORT INFORMATION
  Report Type: 
  Country: None (occurrence: None)
  Receive Date: 20070111
  Receipt Date: 20070111
  Transmission Date: 20070707
  Serious: Yes (Hospitalization)
  Sender: FDA-Public Use
  Company Number: None

PATIENT
  Age: 51 Year
  Sex: Female

DRUGS (7)
  1. IMATINIB MESYLATE [Suspect]
     Indication: GLIOBLASTOMA MULTIFORME
     Dosage: 500MG BID
  2. PTK [Suspect]
     Indication: GLIOBLASTOMA MULTIFORME
     Dosage: 1250 MG BID
     Dates: start: 20060926
  3. HYDROXYUREA [Suspect]
     Indication: GLIOBLASTOMA MULTIFORME
     Dosage: 500 MG BID
     Dates: start: 20061003
  4. DEXAMETHASONE [Concomitant]
  5. DILANTIN [Concomitant]
  6. ZYRTEC [Concomitant]
  7. NEXIUM [Concomitant]

REACTIONS (7)
  - HAEMOGLOBIN DECREASED [None]
  - HEADACHE [None]
  - LEUKOPENIA [None]
  - NAUSEA [None]
  - NEUTROPENIA [None]
  - TREATMENT NONCOMPLIANCE [None]
  - VOMITING [None]
